FAERS Safety Report 14350209 (Version 4)
Quarter: 2018Q2

REPORT INFORMATION
  Report Type: Spontaneous
  Country: TW (occurrence: TW)
  Receive Date: 20180104
  Receipt Date: 20180412
  Transmission Date: 20180711
  Serious: Yes (Other)
  Sender: FDA-Public Use
  Company Number: TW-BRISTOL-MYERS SQUIBB COMPANY-BMS-2017-118531

PATIENT
  Age: 64 Year
  Sex: Male
  Weight: 63 kg

DRUGS (1)
  1. OPDIVO [Suspect]
     Active Substance: NIVOLUMAB
     Indication: MALIGNANT PALATE NEOPLASM
     Dosage: 180 MG, Q2WK
     Route: 042
     Dates: start: 20171117, end: 20171201

REACTIONS (6)
  - Hypothyroidism [Unknown]
  - Hepatic cyst [Unknown]
  - Hepatitis [Recovered/Resolved]
  - Biliary dilatation [Unknown]
  - Nephrolithiasis [Unknown]
  - Renal cyst [Unknown]

NARRATIVE: CASE EVENT DATE: 20171215
